FAERS Safety Report 10498407 (Version 2)
Quarter: 2016Q2

REPORT INFORMATION
  Report Type: Spontaneous
  Country: US (occurrence: US)
  Receive Date: 20140815
  Receipt Date: 20160404
  Transmission Date: 20160815
  Serious: Yes (Hospitalization, Other)
  Sender: FDA-Public Use
  Company Number: ADR-2013-01903

PATIENT
  Sex: Male

DRUGS (15)
  1. POTASSIUM CHLORIDE. [Suspect]
     Active Substance: POTASSIUM CHLORIDE
     Dosage: 40 MEQ/DAY
     Route: 048
  2. SEROQUEL [Suspect]
     Active Substance: QUETIAPINE FUMARATE
     Dosage: 50 MG AT BEDTIME
     Route: 048
  3. VALIUM [Suspect]
     Active Substance: DIAZEPAM
     Dosage: 5 MG TWICE DAILY AS NEEDED
     Route: 048
  4. TAMSULOSIN [Suspect]
     Active Substance: TAMSULOSIN
     Dosage: 0.4 MG/DAY
     Route: 048
  5. LIORESAL [Suspect]
     Active Substance: BACLOFEN
     Dosage: 950 CC OR MG
     Route: 037
  6. COMPOUNDED BACLOFEN [Suspect]
     Active Substance: BACLOFEN
     Indication: MUSCLE SPASTICITY
     Dosage: 999 MCG/DAY TO 1500 MCG/DAY
     Route: 037
     Dates: start: 20060301
  7. HYDROMORPHONE [Suspect]
     Active Substance: HYDROMORPHONE
     Dosage: 4 MG EVERY 3 HOURS AS NEEDED
     Route: 048
  8. BACLOFEN. [Suspect]
     Active Substance: BACLOFEN
     Dosage: 180 MG/DAY
     Route: 048
     Dates: start: 2014
  9. DANTROLENE [Suspect]
     Active Substance: DANTROLENE
     Dosage: 25 MG TWICE DAILY
     Route: 048
  10. FUROSEMIDE. [Suspect]
     Active Substance: FUROSEMIDE
     Dosage: 40 MG/DAY
     Route: 048
  11. HYDROCHOROTHIAZIDE [Suspect]
     Active Substance: HYDROCHLOROTHIAZIDE
     Dosage: 25 MG/DAY
     Route: 048
  12. CYMBALTA [Suspect]
     Active Substance: DULOXETINE HYDROCHLORIDE
     Dosage: 60 MG/DAY
     Route: 048
  13. BISACODYL. [Suspect]
     Active Substance: BISACODYL
     Dosage: 10MG AS NEEDED
     Route: 048
  14. SIMVASTATIN. [Suspect]
     Active Substance: SIMVASTATIN
     Dosage: 40 MG/DAY
     Route: 048
  15. BACLOFEN. [Suspect]
     Active Substance: BACLOFEN
     Dosage: 150 MG/DAY
     Route: 048

REACTIONS (14)
  - Hypersensitivity [Unknown]
  - Mental status changes [Unknown]
  - Muscle tightness [Unknown]
  - Lethargy [Unknown]
  - Respiratory depression [Unknown]
  - Therapeutic response decreased [Unknown]
  - Tremor [Unknown]
  - Overdose [Unknown]
  - Pain [Unknown]
  - Incorrect dose administered [Unknown]
  - Muscle spasticity [Unknown]
  - Muscle spasms [Unknown]
  - Loss of consciousness [Unknown]
  - Fall [Unknown]
